FAERS Safety Report 8549792-0 (Version None)
Quarter: 2012Q3

REPORT INFORMATION
  Report Type: 
  Country: None (occurrence: None)
  Receive Date: 20120730
  Receipt Date: 20120724
  Transmission Date: 20120928
  Serious: Yes (Other)
  Sender: FDA-Public Use
  Company Number: JP-009507513-1207JPN009340

PATIENT

DRUGS (12)
  1. REBETOL [Suspect]
     Route: 048
     Dates: start: 20120608
  2. CLARITIN REDITABS [Concomitant]
     Indication: PROPHYLAXIS
     Route: 048
  3. FLIVAS [Concomitant]
     Indication: BENIGN PROSTATIC HYPERPLASIA
     Route: 048
  4. EPADEL S [Concomitant]
     Indication: HYPERLIPIDAEMIA
     Route: 048
  5. SEFTAC [Concomitant]
     Indication: GASTRITIS
     Route: 048
  6. LYRICA [Concomitant]
     Indication: NEURALGIA
     Route: 048
  7. AMLODIPINE [Concomitant]
     Indication: HYPERTENSION
     Route: 048
  8. FEROTYM [Concomitant]
     Indication: IRON DEFICIENCY ANAEMIA
     Route: 048
  9. TELAVIC [Suspect]
     Indication: HEPATITIS C
     Route: 048
     Dates: start: 20120512
  10. LIVALO [Concomitant]
     Indication: HYPERLIPIDAEMIA
     Route: 048
  11. PEG-INTRON [Suspect]
     Indication: VIRAEMIA
     Dosage: 1.5MCG/KG/WEEK
     Route: 058
     Dates: start: 20120512
  12. REBETOL [Suspect]
     Indication: HEPATITIS C
     Route: 048
     Dates: start: 20120512, end: 20120607

REACTIONS (1)
  - ANAEMIA [None]
